FAERS Safety Report 25610769 (Version 2)
Quarter: 2025Q3

REPORT INFORMATION
  Report Type: Spontaneous
  Country: US (occurrence: US)
  Receive Date: 20250728
  Receipt Date: 20250823
  Transmission Date: 20251020
  Serious: No
  Sender: SANOFI AVENTIS
  Company Number: US-SA-2025SA215384

PATIENT
  Age: 28 Year
  Sex: Female

DRUGS (1)
  1. DUPIXENT [Suspect]
     Active Substance: DUPILUMAB
     Indication: Dermatitis atopic
     Route: 058
     Dates: start: 20250720, end: 20250720

REACTIONS (3)
  - Urticaria [Recovered/Resolved]
  - Eyelids pruritus [Unknown]
  - Eye pruritus [Recovered/Resolved]

NARRATIVE: CASE EVENT DATE: 20250101
